FAERS Safety Report 20329353 (Version 4)
Quarter: 2022Q2

REPORT INFORMATION
  Report Type: Report from Study
  Country: CA (occurrence: CA)
  Receive Date: 20220112
  Receipt Date: 20220517
  Transmission Date: 20220720
  Serious: Yes (Other)
  Sender: FDA-Public Use
  Company Number: CA-JNJFOC-20220116597

PATIENT
  Age: 75 Year
  Sex: Male
  Weight: 65.77 kg

DRUGS (2)
  1. REMICADE [Suspect]
     Active Substance: INFLIXIMAB
     Indication: Crohn^s disease
     Route: 042
     Dates: start: 20151027
  2. REMICADE [Suspect]
     Active Substance: INFLIXIMAB
     Dosage: DOSE MAKE LESS THAN 10 MG/KG
     Route: 042
     Dates: end: 20220510

REACTIONS (6)
  - Coccidioidomycosis [Unknown]
  - Lung neoplasm malignant [Recovering/Resolving]
  - Nephrolithiasis [Unknown]
  - Drug level decreased [Unknown]
  - Off label use [Unknown]
  - Product use issue [Unknown]

NARRATIVE: CASE EVENT DATE: 20220101
